FAERS Safety Report 7741638-3 (Version None)
Quarter: 2011Q3

REPORT INFORMATION
  Report Type: 
  Country: None (occurrence: None)
  Receive Date: 20110911
  Receipt Date: 20110901
  Transmission Date: 20111222
  Serious: Yes (Death)
  Sender: FDA-Public Use
  Company Number: US-CELGENEUS-163-21880-11090534

PATIENT
  Sex: Female

DRUGS (16)
  1. CELEXA [Concomitant]
     Route: 065
  2. MELPHALAN [Concomitant]
     Route: 065
  3. PROMETHAZINE [Concomitant]
     Route: 065
  4. COMBIGAN [Concomitant]
     Route: 065
  5. REVLIMID [Suspect]
     Dosage: 2.5 MILLIGRAM
     Route: 048
     Dates: start: 20110301
  6. ZOCOR [Concomitant]
     Route: 065
  7. ASPIRIN [Concomitant]
     Route: 065
  8. INDERAL [Concomitant]
     Route: 065
  9. MAGNESIUM  OXIDE [Concomitant]
     Route: 065
  10. SIMVASTATIN [Concomitant]
     Route: 065
  11. IMDUR [Concomitant]
     Route: 065
  12. REVLIMID [Suspect]
     Indication: MULTIPLE MYELOMA
     Dosage: 25 MILLIGRAM
     Route: 048
     Dates: start: 20070202
  13. BUTALBITAL [Concomitant]
     Route: 065
  14. DILAUDID [Concomitant]
     Route: 065
  15. PREDNISONE [Concomitant]
     Route: 065
  16. VALTREX [Concomitant]
     Route: 065

REACTIONS (1)
  - DEATH [None]
